FAERS Safety Report 9695726 (Version 1)
Quarter: 2013Q4

REPORT INFORMATION
  Report Type: Spontaneous
  Country: US (occurrence: None)
  Receive Date: 20131118
  Receipt Date: 20131118
  Transmission Date: 20140711
  Serious: Yes (Other)
  Sender: FDA-Public Use
  Company Number: None

PATIENT
  Age: 45 Year
  Sex: Female

DRUGS (2)
  1. CREST PRO-HEALTH [Suspect]
     Indication: GINGIVITIS
     Dosage: ONCE  DAILY
     Route: 048
     Dates: start: 20131111, end: 20131112
  2. CREST PRO-HEALTH [Suspect]
     Indication: DENTAL DISORDER PROPHYLAXIS
     Dosage: ONCE  DAILY
     Route: 048
     Dates: start: 20131111, end: 20131112

REACTIONS (4)
  - Oral discomfort [None]
  - Oral mucosal blistering [None]
  - Oral pain [None]
  - Odynophagia [None]
